FAERS Safety Report 12991392 (Version 1)
Quarter: 2016Q4

REPORT INFORMATION
  Report Type: Spontaneous
  Country: US (occurrence: US)
  Receive Date: 20161201
  Receipt Date: 20161201
  Transmission Date: 20170207
  Serious: Yes (Other)
  Sender: FDA-Public Use
  Company Number: US-PFIZER INC-2016543231

PATIENT
  Age: 67 Year
  Sex: Male
  Weight: 91.62 kg

DRUGS (2)
  1. MELPHALAN [Suspect]
     Active Substance: MELPHALAN
     Dosage: 100 MG/M2, UNK (ON DAY-2 DAY=0)
  2. FLUDARABINE PHOSPHATE. [Suspect]
     Active Substance: FLUDARABINE PHOSPHATE
     Dosage: 25 MG/M2, UNK (DAYS-7 THROUGH-3)

REACTIONS (4)
  - Graft versus host disease [Recovering/Resolving]
  - Sleep disorder [Unknown]
  - Muscle spasms [Unknown]
  - Weight decreased [Unknown]
